FAERS Safety Report 20183803 (Version 2)
Quarter: 2022Q2

REPORT INFORMATION
  Report Type: Spontaneous
  Country: NL (occurrence: NL)
  Receive Date: 20211214
  Receipt Date: 20220623
  Transmission Date: 20220721
  Serious: Yes (Disabling)
  Sender: FDA-Public Use
  Company Number: None

PATIENT
  Age: 42 Year
  Sex: Female
  Weight: 80 kg

DRUGS (1)
  1. HYDROCORTISONE [Suspect]
     Active Substance: HYDROCORTISONE
     Indication: Adrenal insufficiency
     Dosage: 20 TO 30 MG PER DAY FOR 12 YEARS
     Route: 065
     Dates: start: 201009

REACTIONS (3)
  - Pain in extremity [Not Recovered/Not Resolved]
  - Wheelchair user [Not Recovered/Not Resolved]
  - Muscular weakness [Not Recovered/Not Resolved]

NARRATIVE: CASE EVENT DATE: 20150101
